FAERS Safety Report 19972977 (Version 2)
Quarter: 2021Q4

REPORT INFORMATION
  Report Type: Spontaneous
  Country: CA (occurrence: CA)
  Receive Date: 20211019
  Receipt Date: 20211112
  Transmission Date: 20220303
  Serious: No
  Sender: FDA-Public Use
  Company Number: CA-JNJFOC-20211002094

PATIENT

DRUGS (36)
  1. RISPERDAL CONSTA [Suspect]
     Active Substance: RISPERIDONE
     Indication: Product used for unknown indication
     Dosage: 37.50 MG
     Route: 030
  2. RISPERDAL CONSTA [Suspect]
     Active Substance: RISPERIDONE
  3. RISPERDAL CONSTA [Suspect]
     Active Substance: RISPERIDONE
  4. RISPERDAL CONSTA [Suspect]
     Active Substance: RISPERIDONE
  5. RISPERDAL CONSTA [Suspect]
     Active Substance: RISPERIDONE
  6. RISPERDAL CONSTA [Suspect]
     Active Substance: RISPERIDONE
  7. RISPERDAL CONSTA [Suspect]
     Active Substance: RISPERIDONE
  8. RISPERDAL CONSTA [Suspect]
     Active Substance: RISPERIDONE
  9. RISPERDAL CONSTA [Suspect]
     Active Substance: RISPERIDONE
  10. RISPERDAL CONSTA [Suspect]
     Active Substance: RISPERIDONE
  11. RISPERDAL CONSTA [Suspect]
     Active Substance: RISPERIDONE
  12. RISPERDAL CONSTA [Suspect]
     Active Substance: RISPERIDONE
  13. RISPERDAL CONSTA [Suspect]
     Active Substance: RISPERIDONE
     Indication: Product used for unknown indication
     Dosage: 37.50 MG
     Route: 030
  14. RISPERDAL CONSTA [Suspect]
     Active Substance: RISPERIDONE
  15. RISPERDAL CONSTA [Suspect]
     Active Substance: RISPERIDONE
  16. RISPERDAL CONSTA [Suspect]
     Active Substance: RISPERIDONE
  17. RISPERDAL CONSTA [Suspect]
     Active Substance: RISPERIDONE
  18. RISPERDAL CONSTA [Suspect]
     Active Substance: RISPERIDONE
  19. RISPERDAL CONSTA [Suspect]
     Active Substance: RISPERIDONE
  20. RISPERDAL CONSTA [Suspect]
     Active Substance: RISPERIDONE
  21. RISPERDAL CONSTA [Suspect]
     Active Substance: RISPERIDONE
  22. RISPERDAL CONSTA [Suspect]
     Active Substance: RISPERIDONE
  23. RISPERDAL CONSTA [Suspect]
     Active Substance: RISPERIDONE
  24. RISPERDAL CONSTA [Suspect]
     Active Substance: RISPERIDONE
  25. RISPERDAL CONSTA [Suspect]
     Active Substance: RISPERIDONE
     Indication: Product used for unknown indication
     Dosage: 50.00 MG
     Route: 030
  26. RISPERDAL CONSTA [Suspect]
     Active Substance: RISPERIDONE
  27. RISPERDAL CONSTA [Suspect]
     Active Substance: RISPERIDONE
  28. RISPERDAL CONSTA [Suspect]
     Active Substance: RISPERIDONE
  29. RISPERDAL CONSTA [Suspect]
     Active Substance: RISPERIDONE
  30. RISPERDAL CONSTA [Suspect]
     Active Substance: RISPERIDONE
  31. RISPERDAL CONSTA [Suspect]
     Active Substance: RISPERIDONE
  32. RISPERDAL CONSTA [Suspect]
     Active Substance: RISPERIDONE
  33. RISPERDAL CONSTA [Suspect]
     Active Substance: RISPERIDONE
  34. RISPERDAL CONSTA [Suspect]
     Active Substance: RISPERIDONE
  35. RISPERDAL CONSTA [Suspect]
     Active Substance: RISPERIDONE
  36. RISPERDAL CONSTA [Suspect]
     Active Substance: RISPERIDONE

REACTIONS (2)
  - Device occlusion [Unknown]
  - Product dose omission issue [Unknown]
